FAERS Safety Report 18783542 (Version 2)
Quarter: 2021Q1

REPORT INFORMATION
  Report Type: Spontaneous
  Country: US (occurrence: US)
  Receive Date: 20210125
  Receipt Date: 20210129
  Transmission Date: 20210419
  Serious: No
  Sender: FDA-Public Use
  Company Number: US-PFIZER INC-2021034922

PATIENT
  Age: 87 Year
  Sex: Female
  Weight: 90.72 kg

DRUGS (4)
  1. DORZOLAMIDE [Suspect]
     Active Substance: DORZOLAMIDE
     Dosage: UNK
  2. LATANOPROST. [Suspect]
     Active Substance: LATANOPROST
     Indication: MACULAR DEGENERATION
     Dosage: 1 DROP, 1X/DAY (RIGHT EYE AT NIGHT)
     Route: 047
  3. LATANOPROST. [Suspect]
     Active Substance: LATANOPROST
     Indication: EYE HAEMORRHAGE
  4. SYSTANE (HYPROMELLOSE 2910 (4000 MPA.S)) [Suspect]
     Active Substance: HYPROMELLOSE 2910 (4000 MPA.S)
     Dosage: UNK

REACTIONS (2)
  - Visual acuity reduced [Unknown]
  - Off label use [Unknown]
